FAERS Safety Report 8709618 (Version 6)
Quarter: 2013Q4

REPORT INFORMATION
  Report Type: Spontaneous
  Country: US (occurrence: US)
  Receive Date: 20120806
  Receipt Date: 20131008
  Transmission Date: 20140711
  Serious: Yes (Hospitalization)
  Sender: FDA-Public Use
  Company Number: US-GLAXOSMITHKLINE-A0988192A

PATIENT
  Age: 54 Year
  Sex: Female
  Weight: 120 kg

DRUGS (2)
  1. AVANDIA [Suspect]
     Indication: DIABETES MELLITUS
     Dosage: 4MG TWICE PER DAY
     Route: 048
     Dates: start: 2001, end: 20090812
  2. AVANDAMET [Suspect]
     Indication: DIABETES MELLITUS
     Route: 048
     Dates: start: 200309, end: 200603

REACTIONS (16)
  - Cardiac failure congestive [Unknown]
  - Atrial fibrillation [Unknown]
  - Mitral valve incompetence [Unknown]
  - Sick sinus syndrome [Unknown]
  - Pulmonary oedema [Unknown]
  - Chronic obstructive pulmonary disease [Unknown]
  - Local swelling [Unknown]
  - Cardiac pacemaker insertion [Unknown]
  - Cardiac disorder [Unknown]
  - Visual impairment [Unknown]
  - Fatigue [Unknown]
  - Nodal rhythm [Unknown]
  - Tachyarrhythmia [Unknown]
  - Pulmonary embolism [Unknown]
  - Pulmonary hypertension [Unknown]
  - Acute pulmonary oedema [Unknown]
